FAERS Safety Report 9911875 (Version 2)
Quarter: 2014Q1

REPORT INFORMATION
  Report Type: Spontaneous
  Country: US (occurrence: US)
  Receive Date: 20140219
  Receipt Date: 20140219
  Transmission Date: 20141002
  Serious: No
  Sender: FDA-Public Use
  Company Number: US-MYLANLABS-2013S1013700

PATIENT
  Age: 87 Year
  Sex: Male
  Weight: 81.63 kg

DRUGS (3)
  1. EPIPEN [Suspect]
     Indication: FOOD ALLERGY
     Dosage: 0.30 MG, AS NEEDED
     Route: 030
     Dates: start: 20130610
  2. HYDROCHLOROTHIAZIDE [Concomitant]
     Indication: HYPERTENSION
     Dosage: 25 MG, 1X/DAY
     Route: 048
  3. SERTRALINE [Concomitant]
     Indication: DEPRESSION
     Dosage: 100 MG, 1X/DAY
     Route: 048

REACTIONS (3)
  - Drug ineffective [Recovered/Resolved]
  - Product quality issue [Recovered/Resolved]
  - Expired drug administered [Unknown]
